FAERS Safety Report 20137215 (Version 1)
Quarter: 2021Q4

REPORT INFORMATION
  Report Type: Spontaneous
  Country: US (occurrence: US)
  Receive Date: 20211201
  Receipt Date: 20211201
  Transmission Date: 20220304
  Serious: No
  Sender: FDA-Public Use
  Company Number: US-PERRIGO-21US028959

PATIENT
  Age: 71 Year
  Sex: Female
  Weight: 58.05 kg

DRUGS (3)
  1. DICLOFENAC SODIUM [Suspect]
     Active Substance: DICLOFENAC SODIUM
     Indication: Arthralgia
     Dosage: 4 G, SINGLE
     Route: 048
     Dates: start: 20210929, end: 20210929
  2. TYLENOL                            /00020001/ [Concomitant]
     Indication: Arthritis
     Dosage: UNK
     Route: 065
     Dates: start: 20210929
  3. ZYRTEC                             /00884302/ [Concomitant]
     Indication: Seasonal allergy
     Dosage: UNK
     Route: 065

REACTIONS (8)
  - Allergic reaction to excipient [Not Recovered/Not Resolved]
  - Insomnia [Recovered/Resolved]
  - Tongue discomfort [Not Recovered/Not Resolved]
  - Swollen tongue [Not Recovered/Not Resolved]
  - Cough [Not Recovered/Not Resolved]
  - Dysphonia [Not Recovered/Not Resolved]
  - Increased bronchial secretion [Not Recovered/Not Resolved]
  - Throat irritation [Not Recovered/Not Resolved]

NARRATIVE: CASE EVENT DATE: 20210929
